FAERS Safety Report 10234004 (Version 1)
Quarter: 2014Q2

REPORT INFORMATION
  Report Type: Spontaneous
  Country: US (occurrence: US)
  Receive Date: 20140612
  Receipt Date: 20140612
  Transmission Date: 20141212
  Serious: No
  Sender: FDA-Public Use
  Company Number: US-PFIZER INC-2014159888

PATIENT
  Age: 53 Year
  Sex: Female

DRUGS (3)
  1. LYRICA [Suspect]
     Indication: FIBROMYALGIA
     Dosage: 75 MG, TWO OR THREE TIMES A DAY
     Route: 048
     Dates: end: 20140606
  2. PROZAC [Concomitant]
     Indication: DEPRESSION
     Dosage: UNK
  3. TOPAMAX [Concomitant]
     Indication: MIGRAINE
     Dosage: 1000 MG, DAILY

REACTIONS (3)
  - Malaise [Not Recovered/Not Resolved]
  - Pruritus [Not Recovered/Not Resolved]
  - Tremor [Not Recovered/Not Resolved]
